FAERS Safety Report 9197974 (Version 1)
Quarter: 2013Q1

REPORT INFORMATION
  Report Type: Spontaneous
  Country: US (occurrence: US)
  Receive Date: 20130328
  Receipt Date: 20130328
  Transmission Date: 20140127
  Serious: Yes (Death, Hospitalization, Other)
  Sender: FDA-Public Use
  Company Number: CHPA2013US005429

PATIENT
  Age: 65 Year
  Sex: Male

DRUGS (1)
  1. EXCEDRIN EXTRA STRENGTH [Suspect]
     Indication: HEADACHE
     Dosage: 2 TO 4 UNK, QD
     Route: 048

REACTIONS (7)
  - Death [Fatal]
  - Ulcer haemorrhage [Not Recovered/Not Resolved]
  - Diabetes mellitus [Recovering/Resolving]
  - Hypertension [Recovering/Resolving]
  - Blood cholesterol increased [Not Recovered/Not Resolved]
  - Migraine [Not Recovered/Not Resolved]
  - Incorrect drug administration duration [Unknown]
